FAERS Safety Report 6553625-1 (Version None)
Quarter: 2010Q1

REPORT INFORMATION
  Report Type: 
  Country: None (occurrence: None)
  Receive Date: 20100127
  Receipt Date: 20100119
  Transmission Date: 20100710
  Serious: Yes (Hospitalization)
  Sender: FDA-Public Use
  Company Number: AU-SP-2009-05516

PATIENT
  Age: 75 Year
  Sex: Male

DRUGS (6)
  1. IMMUCYST [Suspect]
     Indication: TRANSITIONAL CELL CARCINOMA
     Route: 043
     Dates: start: 20091109, end: 20091109
  2. IMMUCYST [Suspect]
     Route: 043
     Dates: start: 20091109, end: 20091109
  3. IMMUCYST [Suspect]
     Route: 043
     Dates: start: 20091116, end: 20091116
  4. WARFARIN SODIUM [Concomitant]
  5. SOTALOL [Concomitant]
  6. ALLOPURINOL [Concomitant]

REACTIONS (9)
  - ACUTE PULMONARY OEDEMA [None]
  - ATRIAL FLUTTER [None]
  - BOVINE TUBERCULOSIS [None]
  - DYSURIA [None]
  - HAEMATURIA [None]
  - HYPOTENSION [None]
  - PYREXIA [None]
  - SEPSIS [None]
  - TACHYCARDIA [None]
